FAERS Safety Report 6119588-8 (Version None)
Quarter: 2009Q1

REPORT INFORMATION
  Report Type: 
  Country: None (occurrence: None)
  Receive Date: 20090316
  Receipt Date: 20090305
  Transmission Date: 20090719
  Serious: Yes (Hospitalization, Other)
  Sender: FDA-Public Use
  Company Number: JP-JNJFOC-20080901133

PATIENT
  Age: 21 Year
  Sex: Female
  Weight: 60 kg

DRUGS (20)
  1. REMICADE [Suspect]
     Route: 042
  2. REMICADE [Suspect]
     Route: 042
  3. REMICADE [Suspect]
     Route: 042
  4. REMICADE [Suspect]
     Indication: CROHN'S DISEASE
     Route: 042
  5. PENTASA [Concomitant]
     Route: 048
  6. PENTASA [Concomitant]
     Indication: CROHN'S DISEASE
     Route: 048
  7. LEUKERIN [Concomitant]
     Route: 048
  8. LEUKERIN [Concomitant]
     Indication: CROHN'S DISEASE
     Route: 048
  9. ADRENAL HORMONE PREPARATION [Concomitant]
     Indication: PROPHYLAXIS
  10. GASTER [Concomitant]
     Indication: PROPHYLAXIS
     Route: 048
  11. LAC-B [Concomitant]
     Route: 048
  12. LAC-B [Concomitant]
     Indication: CROHN'S DISEASE
     Route: 048
  13. LEUKERIN [Concomitant]
     Route: 048
  14. LEUKERIN [Concomitant]
     Route: 048
  15. LEUKERIN [Concomitant]
     Route: 048
  16. SOLU-CORTEF [Concomitant]
     Indication: PROPHYLAXIS
  17. ELENTAL [Concomitant]
     Route: 048
  18. ELENTAL [Concomitant]
     Route: 048
  19. MAGLAX [Concomitant]
     Indication: PROPHYLAXIS
     Route: 048
  20. SELBEX [Concomitant]
     Indication: PAIN
     Route: 048

REACTIONS (8)
  - ANORECTAL DISCOMFORT [None]
  - ANTINUCLEAR ANTIBODY INCREASED [None]
  - INFLAMMATION [None]
  - INFUSION RELATED REACTION [None]
  - INTESTINAL ULCER [None]
  - PYREXIA [None]
  - RASH ERYTHEMATOUS [None]
  - RASH PRURITIC [None]
